FAERS Safety Report 8759964 (Version 2)
Quarter: 2013Q1

REPORT INFORMATION
  Report Type: Spontaneous
  Country: DE (occurrence: DE)
  Receive Date: 20120829
  Receipt Date: 20130215
  Transmission Date: 20140127
  Serious: Yes (Other)
  Sender: FDA-Public Use
  Company Number: DE-GLAXOSMITHKLINE-D0076553A

PATIENT
  Age: 27 Year
  Sex: Male

DRUGS (1)
  1. ZOFRAN [Suspect]
     Route: 042
     Dates: start: 20120508

REACTIONS (3)
  - Ventricular tachycardia [Recovered/Resolved]
  - Long QT syndrome [Unknown]
  - Tachycardia [Recovered/Resolved]
